FAERS Safety Report 18630715 (Version 1)
Quarter: 2020Q4

REPORT INFORMATION
  Report Type: Spontaneous
  Country: US (occurrence: US)
  Receive Date: 20201218
  Receipt Date: 20201218
  Transmission Date: 20210114
  Serious: No
  Sender: FDA-Public Use
  Company Number: US-INTERSECT ENT, INC.-2103171

PATIENT
  Age: 47 Year
  Sex: Female

DRUGS (1)
  1. SINUVA [Suspect]
     Active Substance: MOMETASONE FUROATE
     Indication: NASAL POLYPS
     Route: 006
     Dates: start: 20200612

REACTIONS (3)
  - Paranasal sinus discomfort [Unknown]
  - Nasal polyps [Unknown]
  - Nasal congestion [Unknown]

NARRATIVE: CASE EVENT DATE: 20200819
